FAERS Safety Report 13108963 (Version 2)
Quarter: 2017Q1

REPORT INFORMATION
  Report Type: Spontaneous
  Country: US (occurrence: US)
  Receive Date: 20170112
  Receipt Date: 20170222
  Transmission Date: 20170428
  Serious: No
  Sender: FDA-Public Use
  Company Number: US-009507513-1612USA013520

PATIENT

DRUGS (12)
  1. STERILE DILUENT [Suspect]
     Active Substance: WATER
     Dosage: UNK
  2. STERILE DILUENT [Suspect]
     Active Substance: WATER
     Dosage: UNK
  3. STERILE DILUENT [Suspect]
     Active Substance: WATER
     Dosage: UNK
  4. STERILE DILUENT [Suspect]
     Active Substance: WATER
     Dosage: UNK
  5. STERILE DILUENT [Suspect]
     Active Substance: WATER
     Dosage: UNK
  6. STERILE DILUENT [Suspect]
     Active Substance: WATER
     Dosage: UNK
  7. STERILE DILUENT [Suspect]
     Active Substance: WATER
     Dosage: UNK
  8. STERILE DILUENT [Suspect]
     Active Substance: WATER
     Dosage: UNK
  9. STERILE DILUENT [Suspect]
     Active Substance: WATER
     Dosage: UNK
  10. STERILE DILUENT [Suspect]
     Active Substance: WATER
     Dosage: UNK
  11. STERILE DILUENT [Suspect]
     Active Substance: WATER
     Dosage: UNK
  12. STERILE DILUENT [Suspect]
     Active Substance: WATER
     Dosage: UNK

REACTIONS (2)
  - Incorrect product storage [Unknown]
  - No adverse event [Unknown]

NARRATIVE: CASE EVENT DATE: 2016
